FAERS Safety Report 24784263 (Version 1)
Quarter: 2024Q4

REPORT INFORMATION
  Report Type: Spontaneous
  Country: US (occurrence: None)
  Receive Date: 20241227
  Receipt Date: 20241227
  Transmission Date: 20250115
  Serious: Yes (Hospitalization)
  Sender: Public
  Company Number: None

PATIENT
  Age: 62 Year
  Sex: Male

DRUGS (12)
  1. XOLAIR [Suspect]
     Active Substance: OMALIZUMAB
     Indication: Asthma
     Dosage: 75 MG/ML EVERY 2 WEEKS SUBCUTANEOUS
     Route: 058
     Dates: start: 202406
  2. XOLAIR [Suspect]
     Active Substance: OMALIZUMAB
     Indication: Asthma
     Dosage: 300 MG/ML EVERY 2 WEEKS SUBCUTANEOUS
     Route: 058
     Dates: start: 202406
  3. ALBUTEROL SULFATE [Concomitant]
     Active Substance: ALBUTEROL SULFATE
  4. ATORVASTATIN [Concomitant]
     Active Substance: ATORVASTATIN
  5. BlKTARVY [Concomitant]
  6. CARVEDILOL [Concomitant]
     Active Substance: CARVEDILOL
  7. DESVENLAFAXINE ER SUCCINATE T DIPHENOXYLATE/ATROPINE [Concomitant]
  8. ELIQUIS [Concomitant]
     Active Substance: APIXABAN
  9. FAMOTIDINE [Concomitant]
     Active Substance: FAMOTIDINE
  10. FLUTICASONE [Concomitant]
     Active Substance: FLUTICASONE
  11. FUROSEMIDE [Concomitant]
     Active Substance: FUROSEMIDE
  12. IRBESARTAN [Concomitant]
     Active Substance: IRBESARTAN

REACTIONS (3)
  - Chronic obstructive pulmonary disease [None]
  - Cardiac failure congestive [None]
  - Condition aggravated [None]

NARRATIVE: CASE EVENT DATE: 20241219
